FAERS Safety Report 9771249 (Version 1)
Quarter: 2013Q4

REPORT INFORMATION
  Report Type: Spontaneous
  Country: US (occurrence: US)
  Receive Date: 20131218
  Receipt Date: 20131218
  Transmission Date: 20140711
  Serious: No
  Sender: FDA-Public Use
  Company Number: US-KOWA-2013S1002130

PATIENT
  Sex: Male

DRUGS (2)
  1. LIPOFEN [Suspect]
     Route: 048
     Dates: start: 20131120, end: 20131129
  2. LIPOFEN [Suspect]
     Route: 048
     Dates: start: 20131203

REACTIONS (1)
  - Blood urine present [Not Recovered/Not Resolved]
